FAERS Safety Report 10544826 (Version 1)
Quarter: 2014Q4

REPORT INFORMATION
  Report Type: Spontaneous
  Country: US (occurrence: None)
  Receive Date: 20141010
  Receipt Date: 20141010
  Transmission Date: 20150529
  Serious: Yes (Hospitalization)
  Sender: FDA-Public Use
  Company Number: 163-POMAL-14064404

PATIENT
  Age: 65 Year
  Sex: Male

DRUGS (6)
  1. VITAMIN B (VITAMIN B) (UNKNOWN) [Concomitant]
  2. NEURONTIN (GABAPENTIN) (UNKNOWN) [Concomitant]
  3. AMOXICILLIN (AMOXICILLIN) (UNKNOWN) (AMOXICILLIN) [Concomitant]
     Active Substance: AMOXICILLIN
  4. POMALYST [Suspect]
     Active Substance: POMALIDOMIDE
     Indication: PLASMA CELL MYELOMA
     Dosage: 2 MG,  21 IN 28 D,  PO?06/01/2014 - PERMANENTLY DISCONTINUED
     Route: 048
     Dates: start: 20140601
  5. FOLIC ACID (FOLIC ACID) (UNKNOWN) [Concomitant]
  6. LORTAB (VICODIN) (UNKNOWN) [Concomitant]

REACTIONS (1)
  - Chest pain [None]

NARRATIVE: CASE EVENT DATE: 2014
